FAERS Safety Report 5621700-1 (Version None)
Quarter: 2008Q1

REPORT INFORMATION
  Report Type: 
  Country: None (occurrence: None)
  Receive Date: 20080211
  Receipt Date: 20080128
  Transmission Date: 20080703
  Serious: Yes (Hospitalization)
  Sender: FDA-Public Use
  Company Number: IT-AMGEN-US262941

PATIENT
  Age: 63 Year
  Sex: Female

DRUGS (1)
  1. ENBREL [Suspect]
     Indication: PSORIATIC ARTHROPATHY
     Dosage: PREFILLED SYRINGE (50MG WEEKLY)
     Route: 058
     Dates: start: 20080115, end: 20080123

REACTIONS (5)
  - CHILLS [None]
  - INFLUENZA LIKE ILLNESS [None]
  - INJECTION SITE ERYTHEMA [None]
  - INJECTION SITE OEDEMA [None]
  - PRURITUS [None]
